FAERS Safety Report 23996430 (Version 1)
Quarter: 2024Q2

REPORT INFORMATION
  Report Type: Spontaneous
  Country: US (occurrence: US)
  Receive Date: 20240620
  Receipt Date: 20240620
  Transmission Date: 20240716
  Serious: Yes (Other)
  Sender: FDA-Public Use
  Company Number: US-TEVA-VS-3208832

PATIENT
  Age: 81 Year
  Sex: Male

DRUGS (2)
  1. AUSTEDO [Suspect]
     Active Substance: DEUTETRABENAZINE
     Indication: Huntington^s disease
     Dosage: 1 TABLET OF AUSTEDO 6 MG AND 1 TABLET OF AUSTEDO 12 MG TWICE A DAY
     Route: 065
  2. ELIQUIS [Concomitant]
     Active Substance: APIXABAN

REACTIONS (3)
  - Atrial fibrillation [Unknown]
  - Productive cough [Not Recovered/Not Resolved]
  - Sinusitis [Not Recovered/Not Resolved]
